FAERS Safety Report 7911101-5 (Version None)
Quarter: 2011Q4

REPORT INFORMATION
  Report Type: 
  Country: None (occurrence: None)
  Receive Date: 20111108
  Receipt Date: 20111031
  Transmission Date: 20120403
  Serious: Yes (Hospitalization, Other)
  Sender: FDA-Public Use
  Company Number: 2010SP032169

PATIENT
  Age: 29 Year
  Sex: Female
  Weight: 60 kg

DRUGS (2)
  1. IMPLANON [Suspect]
     Indication: MENSTRUAL DISORDER
     Dosage: 1 DF
     Dates: start: 20090618
  2. IMPLANON [Suspect]
     Indication: TREATMENT NONCOMPLIANCE
     Dosage: 1 DF
     Dates: start: 20090618

REACTIONS (3)
  - METRORRHAGIA [None]
  - BREAST ABSCESS [None]
  - AMENORRHOEA [None]
